FAERS Safety Report 15807123 (Version 2)
Quarter: 2022Q4

REPORT INFORMATION
  Report Type: Report from Study
  Country: US (occurrence: US)
  Receive Date: 20190110
  Receipt Date: 20221111
  Transmission Date: 20230112
  Serious: Yes (Congenital Anomaly, Other)
  Sender: FDA-Public Use
  Company Number: US-MYLANLABS-2019M1001311

PATIENT
  Age: 4 Year

DRUGS (3)
  1. CISPLATIN [Suspect]
     Active Substance: CISPLATIN
     Indication: Neoplasm malignant
     Dosage: 20 MILLIGRAM/SQ. METER, CYCLE, BEP REGIMEN, 3 CYCLES
     Route: 064
  2. ETOPOSIDE [Suspect]
     Active Substance: ETOPOSIDE
     Indication: Neoplasm malignant
     Dosage: 100 MILLIGRAM/SQ. METER, CYCLE,BEP REGIMEN, 3 CYCLES
     Route: 064
  3. BLEOMYCIN [Suspect]
     Active Substance: BLEOMYCIN SULFATE
     Indication: Neoplasm malignant
     Dosage: 20 MILLIGRAM/SQ. METER, CYCLE,BEP REGIMEN, 3 CYCLES
     Route: 064

REACTIONS (3)
  - Deafness congenital [Unknown]
  - Vestibular disorder [Unknown]
  - Foetal exposure during pregnancy [Recovered/Resolved]
